FAERS Safety Report 8502133-7 (Version None)
Quarter: 2012Q3

REPORT INFORMATION
  Report Type: 
  Country: None (occurrence: None)
  Receive Date: 20120711
  Receipt Date: 20120706
  Transmission Date: 20120928
  Serious: Yes (Other)
  Sender: FDA-Public Use
  Company Number: US-AMGEN-USASP2012041966

PATIENT
  Age: 52 Year
  Sex: Female

DRUGS (1)
  1. ENBREL [Suspect]
     Indication: PSORIASIS
     Dosage: 50 MG, Q3MO
     Dates: start: 20090601

REACTIONS (4)
  - ABNORMAL SLEEP-RELATED EVENT [None]
  - DRUG INEFFECTIVE [None]
  - INSOMNIA [None]
  - PSORIASIS [None]
